FAERS Safety Report 6702426-X (Version None)
Quarter: 2010Q2

REPORT INFORMATION
  Report Type: 
  Country: None (occurrence: None)
  Receive Date: 20100429
  Receipt Date: 20100422
  Transmission Date: 20101027
  Serious: Yes (Hospitalization)
  Sender: FDA-Public Use
  Company Number: A0856319A

PATIENT
  Age: 73 Year
  Sex: Male

DRUGS (8)
  1. SUPER POLIGRIP ORIGINAL DENTURE ADHESIVE CREAM [Suspect]
     Indication: DENTURE WEARER
  2. DENTURE ADHESIVE [Suspect]
     Indication: DENTURE WEARER
  3. ALBUTEROL SULATE [Suspect]
     Indication: ASTHMA
     Route: 055
  4. ALBUTEROL [Suspect]
     Indication: ASTHMA
     Route: 055
  5. METFORMIN [Concomitant]
  6. GLUCOPHAGE [Concomitant]
  7. NORVASC [Concomitant]
     Indication: HYPERTENSION
  8. LOVASTATIN [Concomitant]

REACTIONS (8)
  - ASTHMA [None]
  - BLOOD PRESSURE FLUCTUATION [None]
  - BLOOD PRESSURE INCREASED [None]
  - DEVICE MISUSE [None]
  - HYPERTENSION [None]
  - OROPHARYNGEAL PLAQUE [None]
  - PNEUMONIA [None]
  - PRODUCT QUALITY ISSUE [None]
